FAERS Safety Report 4683381-3 (Version None)
Quarter: 2005Q2

REPORT INFORMATION
  Report Type: 
  Country: None (occurrence: None)
  Receive Date: 20050602
  Receipt Date: 20050407
  Transmission Date: 20051028
  Serious: No
  Sender: FDA-Public Use
  Company Number: 200510697BWH

PATIENT
  Age: 43 Year
  Sex: Male

DRUGS (3)
  1. LEVITRA [Suspect]
     Indication: PROSTATITIS
     Dosage: 10 MG, OW, ORAL; SEE IMAGE
     Route: 048
     Dates: start: 20050301
  2. BACTRIM DS [Concomitant]
  3. ENALATRIL [Concomitant]

REACTIONS (2)
  - HEADACHE [None]
  - OCULAR HYPERAEMIA [None]
